FAERS Safety Report 14565925 (Version 1)
Quarter: 2018Q1

REPORT INFORMATION
  Report Type: Spontaneous
  Country: US (occurrence: US)
  Receive Date: 20180222
  Receipt Date: 20180222
  Transmission Date: 20180509
  Serious: Yes (Hospitalization)
  Sender: FDA-Public Use
  Company Number: None

PATIENT
  Age: 58 Year
  Sex: Female
  Weight: 70.8 kg

DRUGS (1)
  1. IRINOTECAN 20MG/ML 5 ML VIAL WEST-WARD [Suspect]
     Active Substance: IRINOTECAN
     Indication: ADENOCARCINOMA PANCREAS
     Route: 042
     Dates: start: 20180216

REACTIONS (2)
  - Dysarthria [None]
  - Muscle twitching [None]

NARRATIVE: CASE EVENT DATE: 20180216
